FAERS Safety Report 6582390-7 (Version None)
Quarter: 2010Q1

REPORT INFORMATION
  Report Type: 
  Country: None (occurrence: None)
  Receive Date: 20100125
  Receipt Date: 20091113
  Transmission Date: 20100710
  Serious: Yes (Hospitalization)
  Sender: FDA-Public Use
  Company Number: 2009BI035021

PATIENT
  Sex: Female
  Weight: 58.0604 kg

DRUGS (2)
  1. TYSABRI [Suspect]
     Indication: MULTIPLE SCLEROSIS
     Dosage: 300 MG;QM;IV
     Route: 042
     Dates: start: 20070209
  2. AVONEX [Concomitant]

REACTIONS (4)
  - ALOPECIA [None]
  - AMNESIA [None]
  - MULTIPLE SCLEROSIS RELAPSE [None]
  - VITAMIN B12 DECREASED [None]
